FAERS Safety Report 20501537 (Version 1)
Quarter: 2022Q1

REPORT INFORMATION
  Report Type: Spontaneous
  Country: GB (occurrence: GB)
  Receive Date: 20220222
  Receipt Date: 20220222
  Transmission Date: 20220423
  Serious: Yes (Hospitalization, Other)
  Sender: FDA-Public Use
  Company Number: None

PATIENT
  Age: 93 Year
  Sex: Female

DRUGS (7)
  1. BISOPROLOL [Suspect]
     Active Substance: BISOPROLOL
     Indication: Product used for unknown indication
     Dosage: 7.5 MILLIGRAM, AM (7.5MG TABLETS ONE TO BE TAKEN EACH MORNING)
  2. DIGOXIN [Suspect]
     Active Substance: DIGOXIN
     Indication: Product used for unknown indication
     Dosage: 125 MICROGRAM, AM (125MICROGRAM TABLETS ONE TO BE TAKEN EACH MORNING)
  3. EDOXABAN [Concomitant]
     Active Substance: EDOXABAN
     Dosage: 30 MILLIGRAM, AM (30MG TABLETS ONE TO BE TAKEN EACH DAY IN THE MORNING)
     Dates: end: 20220216
  4. LANSOPRAZOLE [Concomitant]
     Active Substance: LANSOPRAZOLE
     Dosage: 30 MILLIGRAM, QD (30MG ORODISPERSIBLE TABLETS TAKE ONE A DAY)
  5. PERINDOPRIL [Concomitant]
     Active Substance: PERINDOPRIL
     Indication: Product used for unknown indication
     Dosage: 4 MILLIGRAM, AM (4MG TABLETS ONE TO BE TAKEN EACH MORNING BEFORE FOOD)
  6. BISOPROLOL [Concomitant]
     Active Substance: BISOPROLOL
  7. DIGAMEX [Concomitant]

REACTIONS (1)
  - Atrial fibrillation [Recovered/Resolved]
